FAERS Safety Report 4316023-7 (Version None)
Quarter: 2004Q1

REPORT INFORMATION
  Report Type: 
  Country: None (occurrence: None)
  Receive Date: 20040311
  Receipt Date: 20040304
  Transmission Date: 20041129
  Serious: Yes (Disabling)
  Sender: FDA-Public Use
  Company Number: WAES 0403GBR00065

PATIENT
  Age: 76 Year
  Sex: Female

DRUGS (7)
  1. ACETAMINOPHEN AND PROPOXYPHENE HYDROCHLORIDE [Concomitant]
  2. BECLOMETHASONE DIPROPIONATE [Concomitant]
  3. ISOSORBIDE MONONITRATE [Concomitant]
     Route: 048
  4. LEVOTHYROXINE SODIUM [Concomitant]
     Route: 048
  5. LOSARTAN POTASSIUM [Concomitant]
  6. MELOXICAM [Concomitant]
  7. ZOCOR [Suspect]
     Indication: ANGINA PECTORIS
     Route: 048
     Dates: start: 20030801, end: 20040211

REACTIONS (1)
  - POLYMYOSITIS [None]
